FAERS Safety Report 8954190 (Version 2)
Quarter: 2012Q4

REPORT INFORMATION
  Report Type: 
  Country: JP (occurrence: JP)
  Receive Date: 20121207
  Receipt Date: 20121219
  Transmission Date: 20130627
  Serious: Yes (Hospitalization, Other)
  Sender: FDA-Public Use
  Company Number: JP-BAYER-201011227BYL

PATIENT
  Age: 66 Year
  Sex: Male
  Weight: 68 kg

DRUGS (7)
  1. NEXAVAR [Suspect]
     Indication: CARCINOMA HEPATOCELLULAR
     Dosage: 200 mg, QID
     Route: 048
     Dates: start: 20100113, end: 20100118
  2. NEXAVAR [Suspect]
     Indication: CARCINOMA HEPATOCELLULAR
     Dosage: 200 mg (Daily Dose)
     Route: 048
     Dates: start: 20100202, end: 20100208
  3. NEXAVAR [Suspect]
     Indication: CARCINOMA HEPATOCELLULAR
     Dosage: 400 mg (Daily Dose)
     Route: 048
     Dates: start: 20100209, end: 20100303
  4. NEXAVAR [Suspect]
     Indication: CARCINOMA HEPATOCELLULAR
     Dosage: 600 mg (Daily Dose), , oral
     Route: 048
  5. NEXAVAR [Suspect]
     Indication: CARCINOMA HEPATOCELLULAR
     Dosage: 800 mg (Daily Dose)
     Route: 048
     Dates: start: 20100304, end: 20100310
  6. URSO [Concomitant]
     Indication: LIVER DISORDER
     Dosage: Daily dose 300 mg
     Route: 048
     Dates: start: 20091224
  7. RANDA [Concomitant]
     Dosage: Daily dose 50 mg
     Route: 013
     Dates: start: 20091030, end: 20091030

REACTIONS (4)
  - Tumour lysis syndrome [Recovered/Resolved]
  - Pyrexia [Recovered/Resolved]
  - Liver function test abnormal [Recovered/Resolved]
  - C-reactive protein increased [Recovered/Resolved]
